FAERS Safety Report 6367842-7 (Version None)
Quarter: 2009Q3

REPORT INFORMATION
  Report Type: 
  Country: None (occurrence: None)
  Receive Date: 20090921
  Receipt Date: 20090909
  Transmission Date: 20100115
  Serious: Yes (Death)
  Sender: FDA-Public Use
  Company Number: US-ELI_LILLY_AND_COMPANY-US200906000367

PATIENT
  Age: 55 Year
  Sex: Female

DRUGS (11)
  1. STRATTERA [Suspect]
     Indication: ATTENTION DEFICIT/HYPERACTIVITY DISORDER
     Dosage: 25 MG, DAILY (1/D)
     Route: 065
     Dates: start: 20090401
  2. STRATTERA [Suspect]
     Dosage: 40 MG, DAILY (1/D)
     Route: 065
     Dates: start: 20090401
  3. STRATTERA [Suspect]
     Dosage: 60 MG, DAILY (1/D)
     Route: 065
     Dates: start: 20090401
  4. STRATTERA [Suspect]
     Dosage: 80 MG, DAILY (1/D)
     Route: 065
     Dates: start: 20090508
  5. WELLBUTRIN [Concomitant]
     Dosage: 150 MG, UNKNOWN
     Route: 065
  6. PAXIL CR [Concomitant]
     Indication: DEPRESSION
     Dosage: 12.5 MG, EACH MORNING
     Route: 065
  7. TOFRANIL [Concomitant]
     Dosage: UNK, UNKNOWN
     Route: 065
  8. KLONOPIN [Concomitant]
     Indication: SLEEP DISORDER
     Dosage: 10 MG, EACH EVENING
     Route: 065
  9. PSEUDOEPHEDRINE HCL [Concomitant]
     Dosage: UNK, UNKNOWN
     Route: 065
  10. TRILAFON [Concomitant]
     Dosage: UNK, UNKNOWN
     Route: 065
  11. ABILIFY [Concomitant]
     Dosage: 10 MG, EACH EVENING
     Route: 065

REACTIONS (1)
  - DEATH [None]
